FAERS Safety Report 17080393 (Version 1)
Quarter: 2019Q4

REPORT INFORMATION
  Report Type: Spontaneous
  Country: FR (occurrence: FR)
  Receive Date: 20191127
  Receipt Date: 20191127
  Transmission Date: 20200122
  Serious: Yes (Life-Threatening, Hospitalization)
  Sender: FDA-Public Use
  Company Number: FR-TEVA-2019-FR-1142119

PATIENT
  Age: 38 Year
  Sex: Female
  Weight: 72 kg

DRUGS (9)
  1. DIAZEPAM. [Suspect]
     Active Substance: DIAZEPAM
     Indication: TOXICITY TO VARIOUS AGENTS
     Dosage: 35 MG PER 1 TOTAL
     Route: 048
     Dates: start: 20190306, end: 20190306
  2. NORFLOXACINE [Suspect]
     Active Substance: NORFLOXACIN
     Indication: TOXICITY TO VARIOUS AGENTS
     Dosage: 4000 MG PER 1 TOTAL
     Route: 048
     Dates: start: 20190306, end: 20190306
  3. ESCITALOPRAM (OXALATE D^) [Suspect]
     Active Substance: ESCITALOPRAM OXALATE
     Indication: TOXICITY TO VARIOUS AGENTS
     Dosage: 90 MG PER 1 TOTAL
     Route: 048
     Dates: start: 20190306, end: 20190306
  4. THERALENE 4 POUR CENT, SOLUTION BUVABLE EN GOUTTES [Suspect]
     Active Substance: TRIMEPRAZINE
     Indication: TOXICITY TO VARIOUS AGENTS
     Dosage: 1.2 GRAM PER 1 TOTAL
     Route: 048
     Dates: start: 20190306, end: 20190306
  5. LOPRAZOLAM [Suspect]
     Active Substance: LOPRAZOLAM
     Indication: TOXICITY TO VARIOUS AGENTS
     Dosage: 88 MG PER 1 TOTAL
     Route: 048
     Dates: start: 20190306, end: 20190306
  6. QUETIAPINE (FUMARATE DE) [Suspect]
     Active Substance: QUETIAPINE FUMARATE
     Indication: TOXICITY TO VARIOUS AGENTS
     Dosage: 13200 MG PER 1 TOTAL
     Route: 048
     Dates: start: 20190306, end: 20190306
  7. TERCIAN 40 MG/ML, SOLUTION BUVABLE EN GOUTTES [Suspect]
     Active Substance: CYAMEMAZINE
     Indication: TOXICITY TO VARIOUS AGENTS
     Dosage: 2400  MG PER 1 TOTAL
     Route: 048
     Dates: start: 20190306, end: 20190306
  8. TERALITHE [Suspect]
     Active Substance: LITHIUM CARBONATE
     Indication: TOXICITY TO VARIOUS AGENTS
     Dosage: 1600 MG PER 1 TOTAL
     Route: 048
     Dates: start: 20190306, end: 20190306
  9. NORDAZEPAM [Suspect]
     Active Substance: NORDAZEPAM
     Indication: TOXICITY TO VARIOUS AGENTS
     Dosage: 22.5 MG PER 1 TOTAL
     Route: 048
     Dates: start: 20190306, end: 20190306

REACTIONS (6)
  - Serotonin syndrome [Recovered/Resolved]
  - Bradypnoea [Recovered/Resolved]
  - Bundle branch block right [Recovered/Resolved]
  - Coma [Recovered/Resolved]
  - Muscle rigidity [Recovered/Resolved]
  - Pyramidal tract syndrome [Recovered/Resolved]

NARRATIVE: CASE EVENT DATE: 20190306
